FAERS Safety Report 9674499 (Version 2)
Quarter: 2013Q4

REPORT INFORMATION
  Report Type: Spontaneous
  Country: IT (occurrence: IT)
  Receive Date: 20131107
  Receipt Date: 20131118
  Transmission Date: 20140711
  Serious: Yes (Other)
  Sender: FDA-Public Use
  Company Number: IT-BRISTOL-MYERS SQUIBB COMPANY-19762376

PATIENT
  Age: 67 Year
  Sex: Male

DRUGS (6)
  1. ERBITUX [Suspect]
     Indication: ADENOCARCINOMA OF COLON
     Route: 042
     Dates: start: 20130226
  2. IRINOTECAN [Suspect]
     Indication: ADENOCARCINOMA OF COLON
     Route: 042
     Dates: start: 20130226
  3. FLUOROURACIL [Suspect]
     Indication: ADENOCARCINOMA OF COLON
     Dosage: 06FEB13-03APR13:736 MG;?06FEB13-03APR13:IV:1104MG
     Route: 040
     Dates: start: 20130226
  4. ONDANSETRON [Concomitant]
     Indication: ANTIEMETIC SUPPORTIVE CARE
     Route: 042
  5. SOLDESAM [Concomitant]
     Indication: ANTIEMETIC SUPPORTIVE CARE
     Dosage: 8MG/2ML
     Route: 042
  6. RANIDIL [Concomitant]
     Indication: ANTIEMETIC SUPPORTIVE CARE
     Dosage: 50MG/75ML
     Route: 042

REACTIONS (6)
  - Muscle spasms [Unknown]
  - Paraesthesia [Unknown]
  - Pyrexia [Unknown]
  - Epistaxis [Unknown]
  - Diarrhoea [Unknown]
  - Rash [Unknown]
